FAERS Safety Report 6160121-2 (Version None)
Quarter: 2009Q2

REPORT INFORMATION
  Report Type: 
  Country: None (occurrence: None)
  Receive Date: 20090420
  Receipt Date: 20090410
  Transmission Date: 20091009
  Serious: Yes (Hospitalization, Congenital Anomaly)
  Sender: FDA-Public Use
  Company Number: A0662860A

PATIENT
  Sex: Male
  Weight: 2.2 kg

DRUGS (1)
  1. PAXIL [Suspect]
     Indication: DEPRESSION
     Dates: start: 19980101, end: 20050101

REACTIONS (2)
  - DRUG EXPOSURE DURING PREGNANCY [None]
  - TALIPES [None]
